FAERS Safety Report 9547123 (Version 2)
Quarter: 2013Q3

REPORT INFORMATION
  Report Type: Report from Study
  Country: CA (occurrence: CA)
  Receive Date: 20130924
  Receipt Date: 20130924
  Transmission Date: 20140515
  Serious: Yes (Death)
  Sender: FDA-Public Use
  Company Number: PHHY2012CA041563

PATIENT
  Age: 64 Year
  Sex: Female

DRUGS (1)
  1. SANDOSTATIN LAR [Suspect]
     Indication: LUNG NEOPLASM MALIGNANT
     Dosage: 20 MG, EVERY 4 WEEKS
     Route: 030
     Dates: start: 20120316, end: 20130906

REACTIONS (13)
  - Gastrointestinal haemorrhage [Fatal]
  - Mouth haemorrhage [Fatal]
  - Lower respiratory tract infection [Unknown]
  - Productive cough [Unknown]
  - Wheezing [Unknown]
  - Increased upper airway secretion [Unknown]
  - Breath sounds abnormal [Unknown]
  - Lung disorder [Unknown]
  - Cough [Unknown]
  - Fatigue [Recovering/Resolving]
  - Constipation [Unknown]
  - Decreased appetite [Unknown]
  - Dyspnoea [Unknown]
